FAERS Safety Report 11590371 (Version 2)
Quarter: 2016Q1

REPORT INFORMATION
  Report Type: Report from Study
  Country: US (occurrence: US)
  Receive Date: 20151002
  Receipt Date: 20160112
  Transmission Date: 20160525
  Serious: Yes (Life-Threatening, Hospitalization, Disabling, Other)
  Sender: FDA-Public Use
  Company Number: US-ASTRAZENECA-2015SE74780

PATIENT
  Age: 66 Year
  Sex: Female
  Weight: 54.4 kg

DRUGS (28)
  1. NEXIUM [Suspect]
     Active Substance: ESOMEPRAZOLE MAGNESIUM
     Indication: HIATUS HERNIA
     Dosage: 2 DF, UNKNOWN
     Route: 048
     Dates: start: 20150730
  2. LIPITOR [Concomitant]
     Active Substance: ATORVASTATIN CALCIUM
     Indication: CARDIAC DISORDER
     Route: 048
  3. NEXIUM [Suspect]
     Active Substance: ESOMEPRAZOLE MAGNESIUM
     Indication: HIATUS HERNIA
     Route: 048
     Dates: start: 2004
  4. NEXIUM [Suspect]
     Active Substance: ESOMEPRAZOLE MAGNESIUM
     Indication: GASTROOESOPHAGEAL REFLUX DISEASE
     Route: 048
  5. LIPITOR [Concomitant]
     Active Substance: ATORVASTATIN CALCIUM
     Indication: BLOOD CHOLESTEROL ABNORMAL
     Route: 048
  6. LEXAPRO [Concomitant]
     Active Substance: ESCITALOPRAM OXALATE
     Indication: DEPRESSION
     Dosage: 25 MG, DAILY (GENERIC)
     Route: 048
  7. METOPROLOL SUCCINATE. [Suspect]
     Active Substance: METOPROLOL SUCCINATE
     Indication: CARDIAC DISORDER
     Route: 048
     Dates: start: 2010
  8. LEXAPRO [Concomitant]
     Active Substance: ESCITALOPRAM OXALATE
     Indication: ANTIDEPRESSANT THERAPY
     Dosage: 25 MG, DAILY (GENERIC)
     Route: 048
  9. PLAVIX [Concomitant]
     Active Substance: CLOPIDOGREL BISULFATE
     Indication: CARDIAC DISORDER
     Dosage: 75 MG, EVERY MORNING (GENERIC)
     Route: 048
     Dates: start: 2010
  10. METOPROLOL SUCCINATE. [Suspect]
     Active Substance: METOPROLOL SUCCINATE
     Indication: CARDIAC DISORDER
     Route: 048
     Dates: start: 2010
  11. NEXIUM [Suspect]
     Active Substance: ESOMEPRAZOLE MAGNESIUM
     Indication: GASTROOESOPHAGEAL REFLUX DISEASE
     Route: 048
     Dates: start: 2004
  12. NEXIUM [Suspect]
     Active Substance: ESOMEPRAZOLE MAGNESIUM
     Indication: HIATUS HERNIA
     Route: 048
     Dates: start: 19990104
  13. NEXIUM [Suspect]
     Active Substance: ESOMEPRAZOLE MAGNESIUM
     Indication: HIATUS HERNIA
     Route: 048
  14. LIPITOR [Concomitant]
     Active Substance: ATORVASTATIN CALCIUM
     Indication: BLOOD CHOLESTEROL ABNORMAL
     Route: 048
     Dates: start: 2010
  15. ASPIRIN. [Concomitant]
     Active Substance: ASPIRIN
     Indication: BLOOD DISORDER
  16. HYDROCODONE [Concomitant]
     Active Substance: HYDROCODONE
  17. NEXIUM [Suspect]
     Active Substance: ESOMEPRAZOLE MAGNESIUM
     Indication: GASTROOESOPHAGEAL REFLUX DISEASE
     Dosage: 2 DF, UNKNOWN
     Route: 048
     Dates: start: 20150730
  18. FUROSEMIDE. [Concomitant]
     Active Substance: FUROSEMIDE
     Indication: FLUID RETENTION
  19. LIPITOR [Concomitant]
     Active Substance: ATORVASTATIN CALCIUM
     Indication: CARDIAC DISORDER
     Route: 048
     Dates: start: 2010
  20. LEXAPRO [Concomitant]
     Active Substance: ESCITALOPRAM OXALATE
     Indication: DEPRESSION
     Route: 048
  21. PLAVIX [Concomitant]
     Active Substance: CLOPIDOGREL BISULFATE
     Indication: ANTICOAGULANT THERAPY
     Dosage: 75 MG, EVERY MORNING (GENERIC)
     Route: 048
     Dates: start: 2010
  22. OXYCODONE [Concomitant]
     Active Substance: OXYCODONE
     Indication: BACK PAIN
     Dosage: 10 MG, 1 TO 2 TABLETS AS NEEDED
     Route: 048
     Dates: start: 2005
  23. LEXAPRO [Concomitant]
     Active Substance: ESCITALOPRAM OXALATE
     Indication: ANTIDEPRESSANT THERAPY
     Route: 048
  24. VITAMINS NOS [Concomitant]
     Active Substance: VITAMINS
  25. PENICILLIN NOS [Concomitant]
     Active Substance: PENICILLIN
  26. NEXIUM [Suspect]
     Active Substance: ESOMEPRAZOLE MAGNESIUM
     Indication: GASTROOESOPHAGEAL REFLUX DISEASE
     Route: 048
     Dates: start: 19990104
  27. OXYCODONE [Concomitant]
     Active Substance: OXYCODONE
     Indication: BACK DISORDER
     Dosage: 10 MG, 1 TO 2 TABLETS AS NEEDED
     Route: 048
     Dates: start: 2005
  28. LASIX [Concomitant]
     Active Substance: FUROSEMIDE
     Indication: FLUID RETENTION
     Dates: start: 2010

REACTIONS (26)
  - Suicidal ideation [Unknown]
  - Throat irritation [Unknown]
  - Fatigue [Unknown]
  - Memory impairment [Unknown]
  - Depression [Unknown]
  - Hand deformity [Unknown]
  - Intentional product misuse [Unknown]
  - Product use issue [Unknown]
  - Feeling abnormal [Unknown]
  - Back pain [Unknown]
  - Gait disturbance [Unknown]
  - Drug ineffective [Unknown]
  - Myocardial infarction [Unknown]
  - Root canal infection [Recovering/Resolving]
  - Weight decreased [Unknown]
  - Burning sensation [Unknown]
  - Weight increased [Unknown]
  - Mental impairment [Unknown]
  - Lung disorder [Unknown]
  - Drug dose omission [Unknown]
  - Off label use [Unknown]
  - Intentional product misuse [Unknown]
  - Cardiac valve disease [Unknown]
  - Pain [Unknown]
  - Eructation [Unknown]
  - Injury [Unknown]

NARRATIVE: CASE EVENT DATE: 2005
